FAERS Safety Report 7023730-4 (Version None)
Quarter: 2010Q4

REPORT INFORMATION
  Report Type: 
  Country: None (occurrence: None)
  Receive Date: 20101001
  Receipt Date: 20100827
  Transmission Date: 20110411
  Serious: Yes (Other)
  Sender: FDA-Public Use
  Company Number: US-BAYER-201032435NA

PATIENT
  Age: 24 Year
  Sex: Female

DRUGS (1)
  1. MIRENA [Suspect]
     Indication: CONTRACEPTION
     Dosage: FREQUENCY:CONTINUOUS
     Route: 015
     Dates: start: 20100729

REACTIONS (8)
  - ABDOMINAL PAIN [None]
  - ANAEMIA [None]
  - DYSPNOEA [None]
  - DYSURIA [None]
  - GENITAL HAEMORRHAGE [None]
  - HEADACHE [None]
  - PELVIC INFLAMMATORY DISEASE [None]
  - WEIGHT DECREASED [None]
